FAERS Safety Report 15140772 (Version 1)
Quarter: 2018Q3

REPORT INFORMATION
  Report Type: Spontaneous
  Country: DE (occurrence: DE)
  Receive Date: 20180713
  Receipt Date: 20180713
  Transmission Date: 20181010
  Serious: Yes (Hospitalization)
  Sender: FDA-Public Use
  Company Number: DE-SA-2018SA153352

PATIENT
  Age: 51 Year
  Sex: Male
  Weight: 77 kg

DRUGS (25)
  1. FLUOROURACIL. [Suspect]
     Active Substance: FLUOROURACIL
     Dosage: 800 MG
     Route: 040
     Dates: start: 20150820, end: 20150820
  2. DEXAMETHASONE. [Concomitant]
     Active Substance: DEXAMETHASONE
     Indication: VOMITING
     Dosage: 8 MG, QCY
     Route: 042
     Dates: start: 20150820
  3. CIPROBAY [CIPROFLOXACIN HYDROCHLORIDE] [Concomitant]
     Active Substance: CIPROFLOXACIN
     Dosage: 500 MG, QD
     Route: 048
     Dates: start: 20160113, end: 20160117
  4. FOLINIC ACID [Suspect]
     Active Substance: LEUCOVORIN
     Dosage: 380 MG
     Route: 042
     Dates: start: 20151001, end: 20151001
  5. FLUOROURACIL. [Suspect]
     Active Substance: FLUOROURACIL
     Dosage: 760 MG
     Route: 040
     Dates: start: 20151001, end: 20151001
  6. BEVACIZUMAB. [Suspect]
     Active Substance: BEVACIZUMAB
     Dosage: 5 MG/KG
     Route: 042
     Dates: start: 20150903, end: 20150903
  7. UNACID [SULTAMICILLIN TOSILATE] [Concomitant]
     Indication: URINARY TRACT INFECTION
     Dosage: 375 MG, BID
     Route: 048
     Dates: start: 20160817, end: 20160821
  8. MCP [METOCLOPRAMIDE HYDROCHLORIDE] [Concomitant]
     Indication: PAIN
     Dosage: 10 MG, UNK
     Route: 048
     Dates: start: 20150811
  9. IRINOTECAN [Suspect]
     Active Substance: IRINOTECAN
     Indication: COLORECTAL CANCER METASTATIC
     Dosage: 170 MG
     Route: 042
     Dates: start: 20150820, end: 20150820
  10. IRINOTECAN [Suspect]
     Active Substance: IRINOTECAN
     Dosage: 342 MG
     Route: 042
     Dates: start: 20151001, end: 20151001
  11. BEVACIZUMAB. [Suspect]
     Active Substance: BEVACIZUMAB
     Indication: COLORECTAL CANCER METASTATIC
     Dosage: 5 MG/KG
     Route: 042
  12. OXALIPLATIN. [Suspect]
     Active Substance: OXALIPLATIN
     Dosage: 85 MG
     Route: 042
     Dates: start: 20150820, end: 20150820
  13. FERRO SANOL [Concomitant]
     Active Substance: FERROUS GLYCINE SULFATE
     Indication: IRON DEFICIENCY ANAEMIA
     Dosage: 100 MG, QD
     Route: 048
     Dates: start: 20151021, end: 20151031
  14. CIPROBAY [CIPROFLOXACIN HYDROCHLORIDE] [Concomitant]
     Active Substance: CIPROFLOXACIN
     Dosage: 500 MG, QD
     Route: 048
     Dates: start: 20160209, end: 20160213
  15. GRANISETRON [Concomitant]
     Active Substance: GRANISETRON
     Indication: VOMITING
     Dosage: 1 MG, QCY
     Route: 042
     Dates: start: 20150820
  16. FLUOROURACIL. [Suspect]
     Active Substance: FLUOROURACIL
     Indication: PRODUCT USED FOR UNKNOWN INDICATION
     Dosage: 2400 MG
     Route: 042
     Dates: start: 20150820, end: 20150822
  17. ATROPIN [ATROPINE] [Concomitant]
     Dosage: 0.25 MG, QCY
     Route: 058
     Dates: start: 20150820, end: 20160309
  18. CIPROBAY [CIPROFLOXACIN HYDROCHLORIDE] [Concomitant]
     Active Substance: CIPROFLOXACIN
     Dosage: 500 MG, QD
     Route: 048
     Dates: start: 20160524, end: 20160529
  19. METAMIZOL [METAMIZOLE] [Concomitant]
     Indication: PAIN
     Dosage: 500 MG, UNK
     Route: 048
     Dates: start: 20150811
  20. FILGRASTIM [Concomitant]
     Active Substance: FILGRASTIM
     Indication: NEUTROPENIA
     Dosage: UNK UNK, UNK
     Route: 058
     Dates: start: 20150825, end: 20160309
  21. OXALIPLATIN. [Suspect]
     Active Substance: OXALIPLATIN
     Indication: PRODUCT USED FOR UNKNOWN INDICATION
     Dosage: 161 MG
     Route: 042
     Dates: start: 20151001, end: 20151001
  22. FOLINIC ACID [Suspect]
     Active Substance: LEUCOVORIN
     Indication: COLORECTAL CANCER METASTATIC
     Dosage: 400 MG
     Route: 042
     Dates: start: 20150820, end: 20150820
  23. FLUOROURACIL. [Suspect]
     Active Substance: FLUOROURACIL
     Dosage: 2280 MG
     Route: 042
     Dates: start: 20151001, end: 20151003
  24. BEVACIZUMAB. [Suspect]
     Active Substance: BEVACIZUMAB
     Dosage: 5 MG/KG
     Route: 042
     Dates: start: 20151001, end: 20151001
  25. ONDANSETRON [Concomitant]
     Active Substance: ONDANSETRON
     Indication: VOMITING
     Dosage: 8 MG, UNK
     Route: 048
     Dates: start: 20150903

REACTIONS (1)
  - Anorectal disorder [Recovered/Resolved]

NARRATIVE: CASE EVENT DATE: 20151006
